FAERS Safety Report 6015718-7 (Version None)
Quarter: 2008Q4

REPORT INFORMATION
  Report Type: 
  Country: None (occurrence: None)
  Receive Date: 20081216
  Receipt Date: 20080117
  Transmission Date: 20090506
  Serious: Yes (Hospitalization, Disabling, Other)
  Sender: FDA-Public Use
  Company Number: HQWYE103511SEP07

PATIENT
  Age: 58 Year
  Sex: Male
  Weight: 104.42 kg

DRUGS (6)
  1. EFFEXOR XR [Suspect]
     Indication: DEPRESSION
     Dosage: ^37.5 MG TO 375 MG ONCE DAILY TO TWICE DAILY^, ORAL
     Route: 048
     Dates: start: 20070501, end: 20070827
  2. ABILIFY [Suspect]
     Dosage: 15 MG 1X PER 1 DAY, ORAL
     Route: 048
     Dates: start: 20070514, end: 20070827
  3. BUSPIRONE HCL [Suspect]
     Indication: ANXIETY
     Dosage: 15 MG 1X PER 1 DAY, ORAL
     Route: 048
     Dates: start: 20070508, end: 20070904
  4. RITALIN [Suspect]
     Indication: PSYCHOTIC DISORDER
     Dosage: 30 MG 1X PER 1 DAY, ORAL
     Route: 048
     Dates: start: 20070514, end: 20070611
  5. COZAAR [Concomitant]
  6. LOPRESSOR (METOPROLOL TARTRATE) [Concomitant]

REACTIONS (3)
  - BLOOD PRESSURE DECREASED [None]
  - HEART RATE DECREASED [None]
  - SYNCOPE [None]
